FAERS Safety Report 10445036 (Version 3)
Quarter: 2015Q1

REPORT INFORMATION
  Report Type: Spontaneous
  Country: US (occurrence: US)
  Receive Date: 20140910
  Receipt Date: 20150219
  Transmission Date: 20150720
  Serious: Yes (Hospitalization, Other)
  Sender: FDA-Public Use
  Company Number: US-BAYER-2014-132849

PATIENT
  Age: 23 Year
  Sex: Female
  Weight: 81.59 kg

DRUGS (5)
  1. MIRENA [Suspect]
     Active Substance: LEVONORGESTREL
     Indication: CONTRACEPTION
     Dosage: 20 MCG/24HR, CONT
     Route: 015
     Dates: start: 20101206, end: 20120623
  2. MIRENA [Suspect]
     Active Substance: LEVONORGESTREL
     Indication: MENORRHAGIA
  3. ZOLOFT [Concomitant]
     Active Substance: SERTRALINE HYDROCHLORIDE
     Indication: ANXIETY
  4. MACROBID [Concomitant]
     Active Substance: NITROFURANTOIN\NITROFURANTOIN MONOHYDRATE
  5. ZOLOFT [Concomitant]
     Active Substance: SERTRALINE HYDROCHLORIDE
     Indication: DEPRESSION
     Dosage: UNK
     Dates: start: 201010, end: 201104

REACTIONS (14)
  - Ectopic pregnancy with contraceptive device [None]
  - Abdominal pain lower [None]
  - Depression [None]
  - Abortion spontaneous [None]
  - Vaginal haemorrhage [None]
  - Drug ineffective [None]
  - Oophorectomy [None]
  - Salpingectomy [None]
  - Abdominal pain [None]
  - Medical device discomfort [None]
  - Anxiety [None]
  - Device dislocation [None]
  - Injury [None]
  - Emotional distress [None]

NARRATIVE: CASE EVENT DATE: 201106
